FAERS Safety Report 5947660-1 (Version None)
Quarter: 2008Q4

REPORT INFORMATION
  Report Type: 
  Country: None (occurrence: None)
  Receive Date: 20081107
  Receipt Date: 20081024
  Transmission Date: 20090506
  Serious: Yes (Hospitalization)
  Sender: FDA-Public Use
  Company Number: 1000001575

PATIENT
  Age: 42 Year
  Sex: Male

DRUGS (13)
  1. ESCITALOPRAM OXALATE [Suspect]
     Dosage: 60 MG (60 MG, 1 IN 1 D)
     Dates: start: 20060629
  2. CYMBALTA [Suspect]
     Dosage: 30 MG (30 MG, 1 IN 1 D); 60 MG (60 MG, 1 IN 1 D); 90 MG (90 MG, 1 IN 1 D); 150 MG (150 MG, 1 IN 1 D)
     Dates: start: 20060719, end: 20060719
  3. CYMBALTA [Suspect]
     Dosage: 30 MG (30 MG, 1 IN 1 D); 60 MG (60 MG, 1 IN 1 D); 90 MG (90 MG, 1 IN 1 D); 150 MG (150 MG, 1 IN 1 D)
     Dates: start: 20060720, end: 20060722
  4. CYMBALTA [Suspect]
     Dosage: 30 MG (30 MG, 1 IN 1 D); 60 MG (60 MG, 1 IN 1 D); 90 MG (90 MG, 1 IN 1 D); 150 MG (150 MG, 1 IN 1 D)
     Dates: start: 20060723, end: 20060807
  5. CYMBALTA [Suspect]
     Dosage: 30 MG (30 MG, 1 IN 1 D); 60 MG (60 MG, 1 IN 1 D); 90 MG (90 MG, 1 IN 1 D); 150 MG (150 MG, 1 IN 1 D)
     Dates: start: 20060808, end: 20060814
  6. CYMBALTA [Suspect]
     Dosage: 30 MG (30 MG, 1 IN 1 D); 60 MG (60 MG, 1 IN 1 D); 90 MG (90 MG, 1 IN 1 D); 150 MG (150 MG, 1 IN 1 D)
     Dates: start: 20060818
  7. CYMBALTA [Suspect]
     Dosage: 180 MG (180 MG, 1 IN 1 D)
     Dates: start: 20060815, end: 20060817
  8. ELMENDOS (200 MILLIGRAM) [Suspect]
     Dosage: 200 MG (200 MG, 1 IN 1 D)
     Dates: start: 20060805
  9. SEROQUEL [Suspect]
     Dosage: 700 MG (700 MG, 1 IN 1 D)
     Dates: start: 20060705
  10. TILIDIN (400 MILLIGRAM) [Suspect]
     Dosage: 400 MG (400 MG, 1 IN 1 D)
  11. ZELDOX (240 MILLIGRAM) [Suspect]
     Dosage: 240 MG (240 MG, 1 IN 1 D)
     Dates: start: 20060715
  12. SORTIS (10 MILLIGRAM) [Suspect]
     Dosage: 10 MG (10 MG, 1 IN 1 D)
  13. LITHIUM CARBONATE [Concomitant]

REACTIONS (5)
  - CONDITION AGGRAVATED [None]
  - DRUG INTERACTION [None]
  - GAMMA-GLUTAMYLTRANSFERASE INCREASED [None]
  - HEPATIC FUNCTION ABNORMAL [None]
  - OVERDOSE [None]
